FAERS Safety Report 4989257-6 (Version None)
Quarter: 2006Q2

REPORT INFORMATION
  Report Type: 
  Country: None (occurrence: None)
  Receive Date: 20060425
  Receipt Date: 20060414
  Transmission Date: 20061013
  Serious: Yes (Other)
  Sender: FDA-Public Use
  Company Number: 2006041275

PATIENT
  Age: 75 Year
  Sex: Male
  Weight: 65.318 kg

DRUGS (13)
  1. LYRICA [Suspect]
     Indication: PAIN
     Dosage: 25 MG (25 MG, 1 IN 1 D)
     Dates: start: 20060107
  2. SINEMET (CARBIDOPAL, LEVODOPA) [Suspect]
     Indication: ILL-DEFINED DISORDER
     Dosage: 1/2 TABLET OF 25/100
     Dates: start: 20060305
  3. CIPROFLOXACIN [Suspect]
     Indication: INFECTION
     Dates: start: 20060301
  4. LAMICTAL [Concomitant]
  5. LEXAPRO [Concomitant]
  6. ALPRAZOLAM [Concomitant]
  7. MULTIVITAMIN [Concomitant]
  8. OSCAL 500-D (CALCIUM, COLECALCIFEROL) [Concomitant]
  9. LYCOPENE [Concomitant]
  10. ZINC PICOLINATE (PICOLINIC ACID) [Concomitant]
  11. WARFARIN SODIUM [Concomitant]
  12. BACLOFEN [Concomitant]
  13. ABILIFY [Concomitant]

REACTIONS (10)
  - CONDITION AGGRAVATED [None]
  - DEVICE RELATED INFECTION [None]
  - LOSS OF CONTROL OF LEGS [None]
  - MUSCLE RIGIDITY [None]
  - PAIN [None]
  - PHARMACEUTICAL PRODUCT COMPLAINT [None]
  - URINARY RETENTION [None]
  - URINARY TRACT INFECTION [None]
  - URINE ABNORMALITY [None]
  - URINE OUTPUT DECREASED [None]
